FAERS Safety Report 23239666 (Version 3)
Quarter: 2023Q4

REPORT INFORMATION
  Report Type: Spontaneous
  Country: US (occurrence: US)
  Receive Date: 20231129
  Receipt Date: 20231219
  Transmission Date: 20240109
  Serious: No
  Sender: FDA-Public Use
  Company Number: US-TORRENT-00013005

PATIENT
  Sex: Female

DRUGS (1)
  1. DAPSONE [Suspect]
     Active Substance: DAPSONE
     Indication: Acne
     Dosage: USING EVERYDAY ONE TIME
     Route: 065
     Dates: start: 20231107

REACTIONS (4)
  - Product quality issue [Unknown]
  - Scratch [Unknown]
  - Dry skin [Unknown]
  - Product dosage form issue [Unknown]
